FAERS Safety Report 10161913 (Version 2)
Quarter: 2014Q2

REPORT INFORMATION
  Report Type: Spontaneous
  Country: FR (occurrence: FR)
  Receive Date: 20140509
  Receipt Date: 20140616
  Transmission Date: 20141212
  Serious: Yes (Hospitalization)
  Sender: FDA-Public Use
  Company Number: FR-JNJFOC-20140419734

PATIENT
  Age: 24 Year
  Sex: Female

DRUGS (3)
  1. STELARA [Suspect]
     Indication: PRODUCT USED FOR UNKNOWN INDICATION
     Route: 058
     Dates: start: 20140401, end: 20140401
  2. RIFINAH [Suspect]
     Indication: PRODUCT USED FOR UNKNOWN INDICATION
     Dosage: 300MG/150MG
     Route: 048
     Dates: start: 20140227, end: 2014
  3. AMOXICILLIN [Suspect]
     Indication: PRODUCT USED FOR UNKNOWN INDICATION
     Dosage: 300MG/150MG
     Route: 065
     Dates: start: 20140322, end: 20140324

REACTIONS (5)
  - Dermatitis exfoliative [Recovered/Resolved]
  - Face oedema [Recovered/Resolved]
  - Eosinophilia [Recovered/Resolved]
  - Skin lesion [Recovered/Resolved]
  - Systemic inflammatory response syndrome [Recovered/Resolved]
